FAERS Safety Report 4467632-6 (Version None)
Quarter: 2004Q4

REPORT INFORMATION
  Report Type: 
  Country: None (occurrence: None)
  Receive Date: 20041001
  Receipt Date: 20040922
  Transmission Date: 20050328
  Serious: Yes (Other)
  Sender: FDA-Public Use
  Company Number: K200401438

PATIENT
  Age: 22 Year
  Sex: Female
  Weight: 48 kg

DRUGS (1)
  1. NORDETTE-21 [Suspect]
     Indication: ORAL CONTRACEPTION
     Dosage: 1 TABLET, QD, ORAL
     Route: 048
     Dates: start: 19950101

REACTIONS (5)
  - BLOOD PRESSURE INCREASED [None]
  - EPISTAXIS [None]
  - OVARIAN CYST [None]
  - PAIN OF SKIN [None]
  - SKIN DISCOLOURATION [None]
